FAERS Safety Report 8426653-9 (Version None)
Quarter: 2012Q2

REPORT INFORMATION
  Report Type: 
  Country: None (occurrence: None)
  Receive Date: 20120611
  Receipt Date: 20120528
  Transmission Date: 20120825
  Serious: Yes (Hospitalization)
  Sender: FDA-Public Use
  Company Number: GB-GILEAD-2012-0049557

PATIENT
  Sex: Female

DRUGS (13)
  1. AMBRISENTAN [Suspect]
     Dosage: 1.25 MG, QD
     Route: 048
     Dates: start: 20111121, end: 20111122
  2. SPIRIVA [Concomitant]
     Route: 055
  3. AMBRISENTAN [Suspect]
     Indication: PULMONARY ARTERIAL HYPERTENSION
     Dosage: 2.5 MG, QD
     Route: 048
     Dates: start: 20111117
  4. ALDACTONE [Concomitant]
     Indication: CARDIAC FAILURE
     Dosage: 50MG PER DAY
     Route: 048
     Dates: start: 20100201
  5. SPIRIVA [Concomitant]
     Route: 055
  6. PAXIL [Concomitant]
     Route: 048
  7. REVATIO [Concomitant]
     Indication: PULMONARY ARTERIAL HYPERTENSION
     Dosage: 40MG PER DAY
     Route: 048
     Dates: start: 20100331
  8. PAXIL [Concomitant]
     Route: 048
  9. LANSOPRAZOLE [Concomitant]
     Route: 048
  10. LANSOPRAZOLE [Concomitant]
     Route: 048
  11. FUROSEMIDE [Concomitant]
     Indication: CARDIAC FAILURE
     Dosage: 40MG PER DAY
     Route: 048
     Dates: start: 20100201
  12. MUCODYNE [Concomitant]
     Route: 048
  13. MUCODYNE [Concomitant]
     Route: 048

REACTIONS (3)
  - OXYGEN SATURATION DECREASED [None]
  - DYSPNOEA [None]
  - PALPITATIONS [None]
